FAERS Safety Report 5638925-1 (Version None)
Quarter: 2008Q1

REPORT INFORMATION
  Report Type: 
  Country: None (occurrence: None)
  Receive Date: 20080225
  Receipt Date: 20080225
  Transmission Date: 20080703
  Serious: Yes (Disabling, Other)
  Sender: FDA-Public Use
  Company Number: None

PATIENT
  Sex: Female
  Weight: 73.4827 kg

DRUGS (1)
  1. CORICIDIN [Suspect]
     Indication: INFLUENZA
     Dosage: 2 PILLS  4 TO 5 HOURS  PO
     Route: 048
     Dates: start: 20080219, end: 20080222

REACTIONS (3)
  - HAEMATOCHEZIA [None]
  - HAEMOPTYSIS [None]
  - HAEMORRHAGE [None]
